FAERS Safety Report 7091191-5 (Version None)
Quarter: 2010Q4

REPORT INFORMATION
  Report Type: 
  Country: None (occurrence: None)
  Receive Date: 20101105
  Receipt Date: 20101105
  Transmission Date: 20110411
  Serious: Yes (Life-Threatening)
  Sender: FDA-Public Use
  Company Number: None

PATIENT
  Sex: Male
  Weight: 76.2043 kg

DRUGS (1)
  1. AVAPRO [Suspect]
     Indication: HYPERTENSION
     Dosage: 150MG DAILY PO
     Route: 048
     Dates: start: 20100503, end: 20100706

REACTIONS (2)
  - PRODUCT QUALITY ISSUE [None]
  - UNEVALUABLE EVENT [None]
